FAERS Safety Report 5799374-9 (Version None)
Quarter: 2008Q3

REPORT INFORMATION
  Report Type: 
  Country: None (occurrence: None)
  Receive Date: 20080703
  Receipt Date: 20080624
  Transmission Date: 20090109
  Serious: Yes (Hospitalization, Other)
  Sender: FDA-Public Use
  Company Number: JP-PFIZER INC-2008053675

PATIENT
  Age: 77 Year
  Sex: Female

DRUGS (6)
  1. LIPITOR [Suspect]
     Indication: HYPERCHOLESTEROLAEMIA
     Dosage: DAILY DOSE:10MG
     Route: 048
     Dates: start: 20071207, end: 20080307
  2. MENEST [Concomitant]
     Route: 048
  3. SELEGILINE HYDROCHLORIDE [Concomitant]
     Route: 048
  4. CLONAZEPAM [Concomitant]
     Route: 048
  5. INDERAL [Concomitant]
     Indication: HYPERTENSION
     Route: 048
  6. GLYSENNID [Concomitant]
     Indication: CONSTIPATION
     Route: 048

REACTIONS (2)
  - HEPATIC ENZYME INCREASED [None]
  - LIVER DISORDER [None]
